FAERS Safety Report 25104882 (Version 1)
Quarter: 2025Q1

REPORT INFORMATION
  Report Type: Spontaneous
  Country: KR (occurrence: KR)
  Receive Date: 20250321
  Receipt Date: 20250321
  Transmission Date: 20250409
  Serious: Yes (Other)
  Sender: AKEBIA THERAPEUTICS
  Company Number: KR-KERYX BIOPHARMACEUTICALS INC.-KR-AKEB-25-000156

PATIENT

DRUGS (2)
  1. VADADUSTAT [Suspect]
     Active Substance: VADADUSTAT
     Indication: Product used for unknown indication
     Route: 065
  2. VADADUSTAT [Suspect]
     Active Substance: VADADUSTAT
     Indication: Product used for unknown indication
     Route: 065

REACTIONS (16)
  - Hypotension [Unknown]
  - Hypertension [Unknown]
  - Seizure [Unknown]
  - Embolism [Unknown]
  - Headache [Unknown]
  - Hypotension [Unknown]
  - Hypersensitivity [Unknown]
  - Cough [Unknown]
  - Constipation [Unknown]
  - Abdominal pain upper [Unknown]
  - Hypertension [Unknown]
  - Diarrhoea [Unknown]
  - Nausea [Unknown]
  - Vomiting [Unknown]
  - Hepatic enzyme increased [Unknown]
  - Blood bilirubin increased [Unknown]
